FAERS Safety Report 12231448 (Version 2)
Quarter: 2016Q2

REPORT INFORMATION
  Report Type: Report from Study
  Country: GB (occurrence: GB)
  Receive Date: 20160401
  Receipt Date: 20160418
  Transmission Date: 20160815
  Serious: Yes (Life-Threatening, Hospitalization, Other)
  Sender: FDA-Public Use
  Company Number: GB-REGENERON PHARMACEUTICALS, INC.-2016-10112

PATIENT

DRUGS (34)
  1. EYLEA [Suspect]
     Active Substance: AFLIBERCEPT
     Dosage: UNK
     Route: 031
     Dates: start: 20150522, end: 20150522
  2. HUMULIN M3 [Concomitant]
     Active Substance: INSULIN HUMAN
     Dosage: 34 IU, QD
     Dates: start: 20151202
  3. ENOXAPARIN [Concomitant]
     Active Substance: ENOXAPARIN
     Indication: PRODUCT USED FOR UNKNOWN INDICATION
     Dosage: 20 MG, QD
     Dates: start: 20151202, end: 20151214
  4. ACTRAPID [Concomitant]
     Active Substance: INSULIN HUMAN
     Indication: PRODUCT USED FOR UNKNOWN INDICATION
     Dosage: 4 IU, PRN
     Dates: start: 20151202, end: 20151215
  5. BRIMONIDINE [Concomitant]
     Active Substance: BRIMONIDINE TARTRATE
     Dosage: 1 GTT, BID, RIGHT EYE
     Dates: start: 20140724
  6. HUMULIN M3 [Concomitant]
     Active Substance: INSULIN HUMAN
     Indication: PRODUCT USED FOR UNKNOWN INDICATION
     Dosage: 26 IU, QD
     Dates: start: 20151202
  7. HUMULIN M3 [Concomitant]
     Active Substance: INSULIN HUMAN
     Dosage: 29 IU, QD
     Dates: start: 20151202
  8. FRUSEMID                           /00032601/ [Concomitant]
     Dosage: 80 MG, STAT
     Dates: start: 20151202, end: 20151202
  9. METOLAZONE. [Concomitant]
     Active Substance: METOLAZONE
     Dosage: 5 MG, ALTERNATE DAYS
     Dates: start: 20151215
  10. BLINDED LASER [Suspect]
     Active Substance: DEVICE
     Indication: DIABETIC RETINOPATHY
     Dosage: UNK
     Route: 031
     Dates: start: 20150327
  11. FRUSEMID                           /00032601/ [Concomitant]
     Indication: PRODUCT USED FOR UNKNOWN INDICATION
     Dosage: 120 MG, CONT
     Dates: start: 20151202, end: 20151215
  12. FRUSEMID                           /00032601/ [Concomitant]
     Dosage: 80 MG, BID
     Dates: start: 20151216
  13. HYPROMELLOSE [Concomitant]
     Active Substance: HYPROMELLOSES
     Dosage: 1 GTT, QID
     Dates: start: 20150522, end: 20150525
  14. GLYCERYL TRINITRATE [Concomitant]
     Active Substance: NITROGLYCERIN
     Indication: PRODUCT USED FOR UNKNOWN INDICATION
     Dosage: 400 ?G, PRN
     Dates: start: 19940101
  15. LISINOPRIL. [Concomitant]
     Active Substance: LISINOPRIL
     Indication: PRODUCT USED FOR UNKNOWN INDICATION
     Dosage: 10 MG, QD
     Dates: start: 20020101
  16. HUMULIN M3 [INSULIN HUMAN] [Concomitant]
     Dosage: 34 IU, QD
     Dates: start: 20151202
  17. BUMETANIDE. [Concomitant]
     Active Substance: BUMETANIDE
     Indication: PRODUCT USED FOR UNKNOWN INDICATION
     Dosage: 2 MG, BID
     Dates: start: 20121213, end: 20151215
  18. BIMATOPROST. [Concomitant]
     Active Substance: BIMATOPROST
     Indication: PRODUCT USED FOR UNKNOWN INDICATION
     Dosage: 1 GTT, BID, LEFT EYE
     Dates: start: 20140724
  19. FRUSEMID [Concomitant]
     Dosage: 120 MG, CONT
     Dates: start: 20151202, end: 20151215
  20. ASPIRIN. [Concomitant]
     Active Substance: ASPIRIN
     Dosage: 75 MG, QD
     Dates: start: 19940525
  21. BLINDED LASER [Suspect]
     Active Substance: DEVICE
     Dosage: UNK
     Route: 031
     Dates: start: 20150522, end: 20150522
  22. METOLAZONE. [Concomitant]
     Active Substance: METOLAZONE
     Indication: PRODUCT USED FOR UNKNOWN INDICATION
     Dosage: 5 MG, STAT
     Dates: start: 20151205, end: 20151205
  23. CALCIUM RESONIUM [Concomitant]
     Dosage: 15 G, QD
     Dates: start: 20151205, end: 20151205
  24. ASPIRIN                            /00002701/ [Concomitant]
     Active Substance: ASPIRIN
     Indication: PRODUCT USED FOR UNKNOWN INDICATION
     Dosage: 75 MG, QD
     Dates: start: 19940525
  25. FRUSEMID [Concomitant]
     Dosage: 80 MG, BID
     Dates: start: 20151216
  26. ACTRAPID [Concomitant]
     Active Substance: INSULIN HUMAN
     Dosage: 4 IU, PRN
     Dates: start: 20151202, end: 20151215
  27. HYPROMELLOSE [Concomitant]
     Active Substance: HYPROMELLOSES
     Indication: PRODUCT USED FOR UNKNOWN INDICATION
     Dosage: 1 GTT, QID
     Dates: start: 20150327, end: 20150330
  28. BIMATOPROST. [Concomitant]
     Active Substance: BIMATOPROST
     Dosage: 1 GTT, BID, RIGHT EYE
     Dates: start: 20140724
  29. EYLEA [Suspect]
     Active Substance: AFLIBERCEPT
     Indication: DIABETIC RETINOPATHY
     Dosage: UNK
     Route: 031
     Dates: start: 20150327
  30. HYPROMELLOSE [Concomitant]
     Active Substance: HYPROMELLOSES
     Dosage: 1 GTT, QID
     Dates: start: 20150424, end: 20150427
  31. CALCIUM RESONIUM [Concomitant]
     Indication: PRODUCT USED FOR UNKNOWN INDICATION
     Dosage: 15 G, BID
     Dates: start: 20151204, end: 20151205
  32. BRIMONIDINE [Concomitant]
     Active Substance: BRIMONIDINE TARTRATE
     Indication: PRODUCT USED FOR UNKNOWN INDICATION
     Dosage: 1 GTT, BID, RIGHT EYE
     Dates: start: 20140724
  33. FRUSEMID [Concomitant]
     Dosage: 80 MG, STAT
     Dates: start: 20151202, end: 20151202
  34. ATORVASTATIN [Concomitant]
     Active Substance: ATORVASTATIN
     Indication: PRODUCT USED FOR UNKNOWN INDICATION
     Dosage: 40 MG, QD
     Dates: start: 20120905

REACTIONS (2)
  - Cardiac failure [Recovered/Resolved]
  - Dyspnoea [Not Recovered/Not Resolved]

NARRATIVE: CASE EVENT DATE: 20151202
